FAERS Safety Report 25768145 (Version 1)
Quarter: 2025Q3

REPORT INFORMATION
  Report Type: Spontaneous
  Country: US (occurrence: US)
  Receive Date: 20250905
  Receipt Date: 20250905
  Transmission Date: 20251021
  Serious: No
  Sender: DOMPE FARMACEUTICI
  Company Number: US-FARMAPROD-202506-1828

PATIENT
  Sex: Female
  Weight: 59.69 kg

DRUGS (17)
  1. OXERVATE [Suspect]
     Active Substance: CENEGERMIN-BKBJ
     Indication: Neurotrophic keratopathy
     Route: 047
     Dates: start: 20250516
  2. COLACE [Concomitant]
     Active Substance: DOCUSATE SODIUM
  3. VITAMIN D3 [Concomitant]
     Active Substance: CHOLECALCIFEROL
  4. MAGNESIUM GLYCINATE [Concomitant]
     Active Substance: MAGNESIUM GLYCINATE
  5. MIEBO [Concomitant]
     Active Substance: PERFLUOROHEXYLOCTANE
  6. RESTASIS [Concomitant]
     Active Substance: CYCLOSPORINE
  7. CELEBREX [Concomitant]
     Active Substance: CELECOXIB
  8. TYLENOL [Concomitant]
     Active Substance: ACETAMINOPHEN
  9. ALPRAZOLAM [Concomitant]
     Active Substance: ALPRAZOLAM
  10. BACLOFEN [Concomitant]
     Active Substance: BACLOFEN
  11. LOTEPREDNOL ETABONATE [Concomitant]
     Active Substance: LOTEPREDNOL ETABONATE
  12. VEVYE [Concomitant]
     Active Substance: CYCLOSPORINE
  13. OMEPRAZOLE [Concomitant]
     Active Substance: OMEPRAZOLE
  14. METHOCARBAMOL [Concomitant]
     Active Substance: METHOCARBAMOL
  15. PILOCARPINE HYDROCHLORIDE [Concomitant]
     Active Substance: PILOCARPINE HYDROCHLORIDE
  16. ORENCIA [Concomitant]
     Active Substance: ABATACEPT
  17. ORENCIA [Concomitant]
     Active Substance: ABATACEPT

REACTIONS (1)
  - Eye pain [Unknown]
